FAERS Safety Report 16093407 (Version 1)
Quarter: 2019Q1

REPORT INFORMATION
  Report Type: Spontaneous
  Country: US (occurrence: US)
  Receive Date: 20190215
  Receipt Date: 20190215
  Transmission Date: 20190418
  Serious: Yes (Death)
  Sender: FDA-Public Use
  Company Number: None

PATIENT
  Age: 59 Year
  Sex: Female

DRUGS (14)
  1. GLYBURIDE. [Concomitant]
     Active Substance: GLYBURIDE
  2. NEUPOGEN [Suspect]
     Active Substance: FILGRASTIM
     Indication: NEOPLASM MALIGNANT
     Route: 058
     Dates: start: 20180911, end: 20181010
  3. DULOXETINE. [Concomitant]
     Active Substance: DULOXETINE
  4. CAPECITABINE 500MG [Suspect]
     Active Substance: CAPECITABINE
     Indication: NEOPLASM MALIGNANT
     Route: 048
     Dates: start: 20180419, end: 20180718
  5. VITAMIN D [Concomitant]
     Active Substance: CHOLECALCIFEROL
  6. FLUTICASONE. [Concomitant]
     Active Substance: FLUTICASONE
  7. OMEPRAZOLE. [Concomitant]
     Active Substance: OMEPRAZOLE
  8. LISINOPRIL. [Concomitant]
     Active Substance: LISINOPRIL
  9. PEG 3350 [Concomitant]
     Active Substance: POLYETHYLENE GLYCOL 3350
  10. FUROSEMIDE. [Concomitant]
     Active Substance: FUROSEMIDE
  11. PREDNISONE. [Concomitant]
     Active Substance: PREDNISONE
  12. JANUMET [Concomitant]
     Active Substance: METFORMIN HYDROCHLORIDE\SITAGLIPTIN PHOSPHATE
  13. SPRONOLACTONE [Concomitant]
  14. GABAPENTIN. [Concomitant]
     Active Substance: GABAPENTIN

REACTIONS (1)
  - Death [None]

NARRATIVE: CASE EVENT DATE: 20190208
